FAERS Safety Report 6188710-X (Version None)
Quarter: 2009Q2

REPORT INFORMATION
  Report Type: 
  Country: None (occurrence: None)
  Receive Date: 20090513
  Receipt Date: 20090504
  Transmission Date: 20091009
  Serious: Yes (Hospitalization)
  Sender: FDA-Public Use
  Company Number: TR-WATSON-2009-03211

PATIENT
  Age: 20 Year
  Sex: Female

DRUGS (1)
  1. FORTAMET [Suspect]
     Indication: SUICIDE ATTEMPT
     Dosage: 76.5 G, SINGLE
     Dates: start: 20080101

REACTIONS (4)
  - COAGULOPATHY [None]
  - FACTOR VII DEFICIENCY [None]
  - POISONING [None]
  - PROTEIN S DECREASED [None]
